FAERS Safety Report 5354523-1 (Version None)
Quarter: 2007Q2

REPORT INFORMATION
  Report Type: 
  Country: None (occurrence: None)
  Receive Date: 20070608
  Receipt Date: 20070531
  Transmission Date: 20071010
  Serious: Yes (Death)
  Sender: FDA-Public Use
  Company Number: MEDI-0005817

PATIENT
  Age: 8 Month
  Sex: Male

DRUGS (6)
  1. SYNAGIS [Suspect]
     Indication: ANTIVIRAL PROPHYLAXIS
     Dosage: 100 MG, INTRAMUSCULAR
     Route: 030
     Dates: start: 20070117, end: 20070220
  2. SYNAGIS [Suspect]
     Indication: RESPIRATORY SYNCYTIAL VIRUS INFECTION
     Dosage: 100 MG, INTRAMUSCULAR
     Route: 030
     Dates: start: 20070117, end: 20070220
  3. SYNAGIS [Suspect]
     Indication: ANTIVIRAL PROPHYLAXIS
     Dosage: 100 MG, INTRAMUSCULAR
     Route: 030
     Dates: start: 20070117
  4. SYNAGIS [Suspect]
     Indication: RESPIRATORY SYNCYTIAL VIRUS INFECTION
     Dosage: 100 MG, INTRAMUSCULAR
     Route: 030
     Dates: start: 20070117
  5. BACLOFEN [Concomitant]
  6. DANTROLENE SODIUM HYDRATE (DANTROLENE SODIUM) [Concomitant]

REACTIONS (1)
  - CARDIO-RESPIRATORY ARREST [None]
